FAERS Safety Report 5489306-5 (Version None)
Quarter: 2007Q4

REPORT INFORMATION
  Report Type: 
  Country: None (occurrence: None)
  Receive Date: 20071018
  Receipt Date: 20071015
  Transmission Date: 20080405
  Serious: Yes (Other)
  Sender: FDA-Public Use
  Company Number: GB-BRISTOL-MYERS SQUIBB COMPANY-13919279

PATIENT
  Age: 57 Year
  Sex: Male
  Weight: 86 kg

DRUGS (7)
  1. FUNGILIN LOZENGES [Suspect]
     Indication: ORAL CANDIDIASIS
     Dosage: 1 DOSAGE FORM IS EQUAL TO 1 LOZENGE
     Route: 048
     Dates: start: 20070913, end: 20070915
  2. SALBUTAMOL INHALER [Concomitant]
     Route: 055
     Dates: start: 20070101
  3. COLOFAC [Concomitant]
     Indication: IRRITABLE BOWEL SYNDROME
     Route: 048
     Dates: start: 20070101, end: 20071005
  4. BECLOMETHASONE INHALER [Concomitant]
     Indication: ASTHMA
     Dosage: 2 PUFFS DAILY.
     Route: 055
     Dates: start: 20070101, end: 20070917
  5. OMEPRAZOLE [Concomitant]
     Indication: GASTRIC ULCER
     Route: 048
     Dates: start: 20070101, end: 20071005
  6. PROPANOL [Concomitant]
     Indication: MIGRAINE
     Route: 048
     Dates: start: 20070101, end: 20070917
  7. SALMETEROL [Concomitant]
     Dosage: 4 PUFFS DAILY FROM THREE MONTHS PRIOR
     Dates: end: 20070829

REACTIONS (1)
  - ANAPHYLACTIC REACTION [None]
